FAERS Safety Report 6416098-5 (Version None)
Quarter: 2009Q4

REPORT INFORMATION
  Report Type: 
  Country: None (occurrence: None)
  Receive Date: 20091027
  Receipt Date: 20091022
  Transmission Date: 20100525
  Serious: Yes (Death)
  Sender: FDA-Public Use
  Company Number: JP-BAYER-200913460BYL

PATIENT
  Age: 76 Year
  Sex: Male
  Weight: 63 kg

DRUGS (10)
  1. NEXAVAR [Suspect]
     Indication: HEPATIC NEOPLASM MALIGNANT
     Dosage: TOTAL DAILY DOSE: 800 MG  UNIT DOSE: 200 MG
     Route: 048
     Dates: start: 20090828, end: 20090910
  2. GASMOTIN [Concomitant]
     Route: 048
     Dates: start: 20090830
  3. OMEPRAL [Concomitant]
     Indication: DUODENAL ULCER
     Route: 065
     Dates: start: 20090403
  4. BLOPRESS [Concomitant]
     Indication: HYPERTENSION
     Route: 048
  5. RENIVACE [Concomitant]
     Indication: HYPERTENSION
     Route: 048
  6. ADALAT [Concomitant]
     Indication: HYPERTENSION
     Route: 048
  7. MEXITIL [Concomitant]
     Route: 065
  8. LACTEC [Concomitant]
     Route: 041
     Dates: start: 20090911
  9. GLUCOSE [Concomitant]
     Route: 041
     Dates: start: 20090911
  10. PREDOPA [Concomitant]
     Route: 041
     Dates: start: 20090911

REACTIONS (1)
  - ILEUS PARALYTIC [None]
